FAERS Safety Report 7928425-8 (Version None)
Quarter: 2011Q4

REPORT INFORMATION
  Report Type: 
  Country: None (occurrence: None)
  Receive Date: 20111118
  Receipt Date: 20110926
  Transmission Date: 20120403
  Serious: Yes (Other)
  Sender: FDA-Public Use
  Company Number: CN-BAYER-2011-090712

PATIENT
  Age: 42 Year
  Sex: Female

DRUGS (2)
  1. AVELOX [Suspect]
     Indication: ENDOMETRITIS
     Dosage: 0.4 G, ONCE
     Route: 048
  2. HONGHE FUJIE XIYE [Concomitant]
     Indication: ENDOMETRITIS
     Route: 061

REACTIONS (6)
  - NIGHT SWEATS [None]
  - DYSPHORIA [None]
  - CARDIOTOXICITY [None]
  - INSOMNIA [None]
  - PALPITATIONS [None]
  - BRADYPNOEA [None]
